FAERS Safety Report 11521215 (Version 1)
Quarter: 2015Q3

REPORT INFORMATION
  Report Type: Spontaneous
  Country: JP (occurrence: JP)
  Receive Date: 20150918
  Receipt Date: 20150918
  Transmission Date: 20151125
  Serious: Yes (Hospitalization)
  Sender: FDA-Public Use
  Company Number: JP-AMGEN-JPNSP2015096505

PATIENT
  Age: 81 Year
  Sex: Male

DRUGS (2)
  1. RANMARK [Suspect]
     Active Substance: DENOSUMAB
     Indication: METASTASES TO BONE
     Dosage: 120 MG, Q4WK
     Route: 058
     Dates: start: 20130527
  2. PREDNISOLONE. [Concomitant]
     Active Substance: PREDNISOLONE
     Dosage: 80 MG, UNK

REACTIONS (1)
  - Interstitial lung disease [Recovering/Resolving]

NARRATIVE: CASE EVENT DATE: 20130527
